FAERS Safety Report 5858779-8 (Version None)
Quarter: 2008Q3

REPORT INFORMATION
  Report Type: 
  Country: None (occurrence: None)
  Receive Date: 20080825
  Receipt Date: 20080813
  Transmission Date: 20090109
  Serious: Yes (Other)
  Sender: FDA-Public Use
  Company Number: 2008AP002023

PATIENT
  Age: 61 Year
  Weight: 106.5953 kg

DRUGS (12)
  1. SERTRALINE HYDROCHLORIDE [Suspect]
     Indication: ANXIETY
     Dosage: 150 MG; QD; PO
     Route: 048
     Dates: start: 20080701, end: 20080814
  2. SIMVASTATIN [Concomitant]
  3. PRAMIPEXOLE DIHYDROCHLORIDE [Concomitant]
  4. DIHYDROCHLORIDE [Concomitant]
  5. SPIRONOLACTONE [Concomitant]
  6. HYDROCHLOROTHIAZIDE [Concomitant]
  7. OLMESARTAN MEDOXOMIL [Concomitant]
  8. FINASTERIDE [Concomitant]
  9. CARVEDILOL [Concomitant]
  10. SERTRALINE HYDROCHLORIDE [Concomitant]
  11. AMLODIPINE BESYLATE [Concomitant]
  12. SERTRALINE HYDROCHLORIDE [Concomitant]

REACTIONS (12)
  - ANGER [None]
  - ANHEDONIA [None]
  - DELUSION [None]
  - DEPRESSION [None]
  - DISTURBANCE IN ATTENTION [None]
  - DRUG INEFFECTIVE [None]
  - FATIGUE [None]
  - FEELINGS OF WORTHLESSNESS [None]
  - IMPATIENCE [None]
  - MOOD ALTERED [None]
  - RESTLESSNESS [None]
  - SOCIAL AVOIDANT BEHAVIOUR [None]
